FAERS Safety Report 6186715-6 (Version None)
Quarter: 2009Q2

REPORT INFORMATION
  Report Type: 
  Country: None (occurrence: None)
  Receive Date: 20090508
  Receipt Date: 20090430
  Transmission Date: 20091009
  Serious: Yes (Hospitalization, Other)
  Sender: FDA-Public Use
  Company Number: SPV1-2009-00847

PATIENT
  Age: 33 Year
  Sex: Female
  Weight: 83.9 kg

DRUGS (5)
  1. PENTASA [Suspect]
     Indication: CROHN'S DISEASE
     Dosage: 500 MG, 4X/DAY:QID, ORAL; 500 MG, 2X/DAY:BID, ORAL
     Route: 048
     Dates: start: 20070101, end: 20090314
  2. PENTASA [Suspect]
     Indication: IRRITABLE BOWEL SYNDROME
     Dosage: 500 MG, 4X/DAY:QID, ORAL; 500 MG, 2X/DAY:BID, ORAL
     Route: 048
     Dates: start: 20070101, end: 20090314
  3. PENTASA [Suspect]
     Indication: CROHN'S DISEASE
     Dosage: 500 MG, 4X/DAY:QID, ORAL; 500 MG, 2X/DAY:BID, ORAL
     Route: 048
     Dates: start: 20090314
  4. PENTASA [Suspect]
     Indication: IRRITABLE BOWEL SYNDROME
     Dosage: 500 MG, 4X/DAY:QID, ORAL; 500 MG, 2X/DAY:BID, ORAL
     Route: 048
     Dates: start: 20090314
  5. NEXIUM [Concomitant]

REACTIONS (7)
  - ABDOMINAL PAIN [None]
  - ACCIDENTAL EXPOSURE [None]
  - APPENDIX DISORDER [None]
  - GALLBLADDER NON-FUNCTIONING [None]
  - OFF LABEL USE [None]
  - OVARIAN CYST [None]
  - WRONG DRUG ADMINISTERED [None]
